FAERS Safety Report 8285681-7 (Version None)
Quarter: 2012Q2

REPORT INFORMATION
  Report Type: 
  Country: None (occurrence: None)
  Receive Date: 20120413
  Receipt Date: 20120410
  Transmission Date: 20120825
  Serious: Yes (Hospitalization)
  Sender: FDA-Public Use
  Company Number: CN-BAXTER-2012BAX001862

PATIENT
  Sex: Female
  Weight: 52 kg

DRUGS (2)
  1. OLICLINOMEL [Suspect]
     Indication: PARENTERAL NUTRITION
     Route: 042
     Dates: start: 20120324
  2. PRILOSEC [Concomitant]
     Route: 042
     Dates: start: 20120319, end: 20120329

REACTIONS (1)
  - URINARY TRACT INFECTION [None]
